FAERS Safety Report 17909254 (Version 2)
Quarter: 2020Q3

REPORT INFORMATION
  Report Type: Report from Study
  Country: None (occurrence: US)
  Receive Date: 20200618
  Receipt Date: 20200715
  Transmission Date: 20201103
  Serious: Yes (Hospitalization)
  Sender: FDA-Public Use
  Company Number: US-ABBVIE-20K-163-3388570-00

PATIENT
  Sex: Female
  Weight: 49.03 kg

DRUGS (3)
  1. HUMIRA [Suspect]
     Active Substance: ADALIMUMAB
     Indication: CROHN^S DISEASE
     Route: 058
  2. HUMIRA [Suspect]
     Active Substance: ADALIMUMAB
     Indication: CROHN^S DISEASE
     Dosage: CITRATE FREE
     Route: 058
     Dates: start: 201806, end: 201808
  3. HUMIRA [Suspect]
     Active Substance: ADALIMUMAB
     Dosage: CITRATE FREE
     Route: 058
     Dates: start: 201902

REACTIONS (11)
  - Illness [Unknown]
  - Immunodeficiency [Recovered/Resolved]
  - Injection site urticaria [Recovered/Resolved]
  - Abdominal abscess [Recovered/Resolved]
  - Crohn^s disease [Recovered/Resolved]
  - Scar [Unknown]
  - Weight increased [Unknown]
  - Malnutrition [Not Recovered/Not Resolved]
  - Immunodeficiency [Not Recovered/Not Resolved]
  - Injection site pain [Recovered/Resolved]
  - Feeding disorder [Recovering/Resolving]

NARRATIVE: CASE EVENT DATE: 2018
